FAERS Safety Report 8399933-3 (Version None)
Quarter: 2012Q2

REPORT INFORMATION
  Report Type: 
  Country: None (occurrence: None)
  Receive Date: 20120531
  Receipt Date: 20120521
  Transmission Date: 20120825
  Serious: Yes (Death, Hospitalization)
  Sender: FDA-Public Use
  Company Number: US-BAXTER-2012BH001479

PATIENT
  Sex: Male

DRUGS (1)
  1. DIANEAL [Suspect]
     Indication: PERITONEAL DIALYSIS
     Route: 033
     Dates: end: 20120109

REACTIONS (4)
  - PERITONITIS [None]
  - CARDIAC DISORDER [None]
  - PERITONEAL DIALYSIS COMPLICATION [None]
  - THERAPY CESSATION [None]
